FAERS Safety Report 7968691-6 (Version None)
Quarter: 2011Q4

REPORT INFORMATION
  Report Type: 
  Country: None (occurrence: None)
  Receive Date: 20111209
  Receipt Date: 20111207
  Transmission Date: 20120403
  Serious: Yes (Other)
  Sender: FDA-Public Use
  Company Number: US-BAYER-2011-117397

PATIENT
  Age: 38 Year
  Sex: Female

DRUGS (1)
  1. BETASERON [Suspect]
     Indication: RELAPSING-REMITTING MULTIPLE SCLEROSIS
     Dosage: 2 MIU, QOD
     Route: 058
     Dates: start: 20111202

REACTIONS (6)
  - BLOOD PRESSURE INCREASED [None]
  - TREMOR [None]
  - VOMITING [None]
  - DIARRHOEA [None]
  - HEART RATE INCREASED [None]
  - BODY TEMPERATURE INCREASED [None]
